FAERS Safety Report 16859695 (Version 4)
Quarter: 2020Q1

REPORT INFORMATION
  Report Type: Spontaneous
  Country: US (occurrence: US)
  Receive Date: 20190927
  Receipt Date: 20200210
  Transmission Date: 20200409
  Serious: No
  Sender: FDA-Public Use
  Company Number: PHEH2019US039859

PATIENT
  Sex: Male

DRUGS (3)
  1. PROMACTA [Suspect]
     Active Substance: ELTROMBOPAG OLAMINE
     Indication: IMMUNE THROMBOCYTOPENIC PURPURA
     Dosage: 25 MG, QD
     Route: 048
     Dates: start: 20170615
  2. PROMACTA [Suspect]
     Active Substance: ELTROMBOPAG OLAMINE
     Dosage: 25 UNK
     Route: 048
     Dates: start: 20170620
  3. PROMACTA [Suspect]
     Active Substance: ELTROMBOPAG OLAMINE
     Dosage: 25 UNK
     Route: 048
     Dates: start: 20170621

REACTIONS (6)
  - Memory impairment [Unknown]
  - Amnesia [Unknown]
  - Vision blurred [Unknown]
  - Fatigue [Unknown]
  - Dizziness [Unknown]
  - Eye irritation [Unknown]
